FAERS Safety Report 5878988-1 (Version None)
Quarter: 2008Q3

REPORT INFORMATION
  Report Type: 
  Country: None (occurrence: None)
  Receive Date: 20080912
  Receipt Date: 20080828
  Transmission Date: 20090109
  Serious: Yes (Other)
  Sender: FDA-Public Use
  Company Number: US-ELI_LILLY_AND_COMPANY-US200808006240

PATIENT
  Sex: Female
  Weight: 82.54 kg

DRUGS (18)
  1. BYETTA [Suspect]
     Indication: TYPE 2 DIABETES MELLITUS
     Dosage: 5 UG, 2/D
     Route: 058
     Dates: start: 20060401, end: 20060401
  2. GLUCOPHAGE [Concomitant]
     Indication: TYPE 2 DIABETES MELLITUS
     Dosage: 2000 MG, DAILY (1/D)
     Route: 048
  3. CATAPRES /UNK/ [Concomitant]
     Indication: HYPERTENSION
     Dosage: 0.3 MG, WEEKLY (1/W)
     Route: 061
  4. LISINOPRIL [Concomitant]
     Dosage: 40 MG, DAILY (1/D)
     Route: 048
  5. COREG [Concomitant]
     Dosage: 25 MG, DAILY (1/D)
     Route: 048
  6. ALDACTAZIDE [Concomitant]
     Indication: TYPE 2 DIABETES MELLITUS
     Dosage: UNK, DAILY (1/D)
     Route: 048
  7. OS-CAL [Concomitant]
     Dosage: 500 MG, 3/D
     Route: 048
  8. GLUCOTROL [Concomitant]
     Indication: TYPE 2 DIABETES MELLITUS
     Dosage: 10 MG, DAILY (1/D)
     Route: 048
  9. VYTORIN [Concomitant]
     Dosage: UNK, DAILY (1/D)
     Route: 048
  10. NORVASC [Concomitant]
     Dosage: 10 MG, 2/D
     Route: 048
  11. SYNTHROID [Concomitant]
     Dosage: 125 MG, DAILY (1/D)
     Route: 048
  12. REMICADE [Concomitant]
     Dosage: 100 MG, OTHER
  13. DARVOCET-N 100 [Concomitant]
     Dosage: UNK, AS NEEDED
     Route: 048
  14. MAGNESIUM SULFATE [Concomitant]
     Dosage: 64 MG, DAILY (1/D)
     Route: 048
  15. ARAVA [Concomitant]
     Dosage: 20 MG, DAILY (1/D)
     Route: 048
  16. NEXIUM [Concomitant]
     Dosage: 40 MG, DAILY (1/D)
     Route: 048
  17. SLOW-FE [Concomitant]
     Dosage: 160 MG, 2/D
     Route: 048
  18. ASPIRIN [Concomitant]
     Dosage: 325 MG, DAILY (1/D)
     Route: 048

REACTIONS (6)
  - ABDOMINAL PAIN UPPER [None]
  - ANOREXIA [None]
  - ASTHENIA [None]
  - FEELING ABNORMAL [None]
  - PANCREATITIS [None]
  - WEIGHT DECREASED [None]
